FAERS Safety Report 4363175-9 (Version None)
Quarter: 2004Q2

REPORT INFORMATION
  Report Type: 
  Country: None (occurrence: None)
  Receive Date: 20040524
  Receipt Date: 20030930
  Transmission Date: 20050107
  Serious: No
  Sender: FDA-Public Use
  Company Number: US-GLAXOSMITHKLINE-A0428043A

PATIENT
  Age: 53 Year
  Sex: Male

DRUGS (1)
  1. BACTROBAN [Suspect]
     Indication: SKIN INFECTION
     Route: 061
     Dates: start: 20030929, end: 20030930

REACTIONS (6)
  - BURNING SENSATION [None]
  - COLD SWEAT [None]
  - DISORIENTATION [None]
  - DIZZINESS [None]
  - PAIN [None]
  - STAPHYLOCOCCAL INFECTION [None]
